FAERS Safety Report 7853615-2 (Version None)
Quarter: 2011Q4

REPORT INFORMATION
  Report Type: 
  Country: None (occurrence: None)
  Receive Date: 20111026
  Receipt Date: 20111020
  Transmission Date: 20120403
  Serious: Yes (Hospitalization)
  Sender: FDA-Public Use
  Company Number: US-PFIZER INC-2011254309

PATIENT
  Sex: Female
  Weight: 61.2 kg

DRUGS (1)
  1. GENOTROPIN [Suspect]
     Indication: GROWTH HORMONE DEFICIENCY
     Dosage: 0.4 MG, DAILY
     Dates: start: 20070901, end: 20110801

REACTIONS (1)
  - PANCREATIC CARCINOMA [None]
